FAERS Safety Report 22330131 (Version 1)
Quarter: 2023Q2

REPORT INFORMATION
  Report Type: Other
  Country: US (occurrence: None)
  Receive Date: 20230517
  Receipt Date: 20230517
  Transmission Date: 20230722
  Serious: No
  Sender: FDA-Public Use
  Company Number: US-ROCHE-3117068

PATIENT
  Age: 25 Year
  Sex: Male

DRUGS (12)
  1. TOCILIZUMAB [Suspect]
     Active Substance: TOCILIZUMAB
     Indication: COVID-19
     Route: 065
  2. HYDROXYCHLOROQUINE [Concomitant]
     Active Substance: HYDROXYCHLOROQUINE
  3. AZITHROMYCIN [Concomitant]
     Active Substance: AZITHROMYCIN
  4. IVERMECTIN [Concomitant]
     Active Substance: IVERMECTIN
  5. ANAKINRA [Concomitant]
     Active Substance: ANAKINRA
  6. HUMAN PLASMA [Concomitant]
     Active Substance: HUMAN PLASMA
  7. REMDESIVIR [Concomitant]
     Active Substance: REMDESIVIR
  8. MEROPENEM [Concomitant]
     Active Substance: MEROPENEM
  9. PIPERACILLIN SODIUM\TAZOBACTAM SODIUM [Concomitant]
     Active Substance: PIPERACILLIN SODIUM\TAZOBACTAM SODIUM
  10. VANCOMYCIN [Concomitant]
     Active Substance: VANCOMYCIN
  11. CASPOFUNGIN [Concomitant]
     Active Substance: CASPOFUNGIN
  12. FLUCONAZOLE [Concomitant]
     Active Substance: FLUCONAZOLE

REACTIONS (2)
  - Off label use [Unknown]
  - No adverse event [Unknown]
